FAERS Safety Report 21401545 (Version 2)
Quarter: 2022Q4

REPORT INFORMATION
  Report Type: Spontaneous
  Country: US (occurrence: None)
  Receive Date: 20221003
  Receipt Date: 20221013
  Transmission Date: 20230113
  Serious: Yes (Hospitalization)
  Sender: FDA-Public Use
  Company Number: US-ROCHE-3189716

PATIENT
  Sex: Male

DRUGS (4)
  1. NUTROPIN [Suspect]
     Active Substance: SOMATROPIN
     Indication: Chronic kidney disease
     Dosage: NUTROPIN AQ 10MG/2ML NUSPIN
     Route: 058
     Dates: start: 20220805
  2. NUTROPIN [Suspect]
     Active Substance: SOMATROPIN
  3. NUTROPIN [Suspect]
     Active Substance: SOMATROPIN
     Dosage: INJECT 0.4 MG UNDER THE SKIN
     Route: 058
  4. NUTROPIN [Suspect]
     Active Substance: SOMATROPIN

REACTIONS (2)
  - Urinary tract infection [Unknown]
  - Off label use [Unknown]
